FAERS Safety Report 22653841 (Version 1)
Quarter: 2023Q2

REPORT INFORMATION
  Report Type: Spontaneous
  Country: US (occurrence: US)
  Receive Date: 20230629
  Receipt Date: 20230629
  Transmission Date: 20230722
  Serious: Yes (Death, Other)
  Sender: FDA-Public Use
  Company Number: US-LUPIN PHARMACEUTICALS INC.-2023-05068

PATIENT
  Age: 76 Year
  Sex: Male

DRUGS (2)
  1. DECITABINE [Suspect]
     Active Substance: DECITABINE
     Indication: Blastic plasmacytoid dendritic cell neoplasia
     Dosage: 20 MILLIGRAM/SQ. METER
     Route: 065
  2. VENETOCLAX [Suspect]
     Active Substance: VENETOCLAX
     Indication: Blastic plasmacytoid dendritic cell neoplasia
     Dosage: 100 MG
     Route: 065

REACTIONS (3)
  - Pneumonia aspiration [Fatal]
  - Septic shock [Fatal]
  - Gastrointestinal haemorrhage [Unknown]
